FAERS Safety Report 4717291-X (Version None)
Quarter: 2005Q3

REPORT INFORMATION
  Report Type: 
  Country: None (occurrence: None)
  Receive Date: 20050715
  Receipt Date: 20050705
  Transmission Date: 20060218
  Serious: Yes (Other)
  Sender: FDA-Public Use
  Company Number: 2005097020

PATIENT
  Sex: Female

DRUGS (3)
  1. AROMASIN [Suspect]
     Indication: BREAST CANCER
     Dosage: 25 MG (WEEKLY), ORAL
     Route: 048
     Dates: start: 20041101, end: 20050601
  2. TAXOL [Suspect]
     Indication: BREAST CANCER
     Dosage: (WEEKLY), NTRAVENOUS
     Route: 042
     Dates: start: 20041101, end: 20050601
  3. ARIMIDEX [Suspect]
     Indication: BREAST CANCER

REACTIONS (4)
  - ADRENAL INSUFFICIENCY [None]
  - BREAST CANCER RECURRENT [None]
  - MALIGNANT NEOPLASM PROGRESSION [None]
  - METASTASES TO ADRENALS [None]
